FAERS Safety Report 7920218-0 (Version None)
Quarter: 2011Q4

REPORT INFORMATION
  Report Type: 
  Country: None (occurrence: None)
  Receive Date: 20111117
  Receipt Date: 20111114
  Transmission Date: 20120403
  Serious: Yes (Other)
  Sender: FDA-Public Use
  Company Number: US-PFIZER INC-2011231138

PATIENT
  Sex: Female
  Weight: 65.76 kg

DRUGS (12)
  1. PREDNISONE [Concomitant]
  2. PROMETHAZINE [Concomitant]
  3. POTASSIUM CHLORIDE [Concomitant]
  4. GABAPENTIN [Concomitant]
  5. LOPERAMIDE [Concomitant]
  6. KEPPRA [Concomitant]
  7. SORAFENIB [Suspect]
     Indication: SARCOMA
     Dosage: 200 MG, 2X/DAY
     Route: 048
     Dates: start: 20110826, end: 20110927
  8. HYDROCODONE [Concomitant]
  9. VENLAFAXINE [Concomitant]
  10. MIDODRINE [Concomitant]
  11. ZOLPIDEM [Concomitant]
  12. RAPAMUNE [Suspect]
     Indication: SARCOMA
     Dosage: 2 MG, 3X/DAY
     Route: 048
     Dates: start: 20110826

REACTIONS (1)
  - URTICARIA [None]
